FAERS Safety Report 8969536 (Version 1)
Quarter: 2012Q4

REPORT INFORMATION
  Report Type: 
  Country: US (occurrence: US)
  Receive Date: 20121218
  Receipt Date: 20121218
  Transmission Date: 20130627
  Serious: No
  Sender: FDA-Public Use
  Company Number: US-BRISTOL-MYERS SQUIBB COMPANY-16591109

PATIENT
  Age: 64 Year
  Sex: Male
  Weight: 88.89 kg

DRUGS (2)
  1. ABILIFY [Suspect]
     Indication: STRESS
     Dosage: 2mg cuts in half (1mg daily)
  2. ABILIFY [Suspect]
     Indication: ANXIETY
     Dosage: 2mg cuts in half (1mg daily)

REACTIONS (4)
  - Tension headache [Unknown]
  - Food craving [Unknown]
  - Blood glucose increased [Unknown]
  - Weight increased [Unknown]
